FAERS Safety Report 26144539 (Version 2)
Quarter: 2025Q4

REPORT INFORMATION
  Report Type: Spontaneous
  Country: US (occurrence: US)
  Receive Date: 20251211
  Receipt Date: 20251222
  Transmission Date: 20260118
  Serious: Yes (Life-Threatening, Hospitalization, Other)
  Sender: TEVA
  Company Number: US-TEVA-VS-3399920

PATIENT
  Age: 62 Year
  Sex: Female

DRUGS (15)
  1. CISPLATIN [Suspect]
     Active Substance: CISPLATIN
     Indication: Adrenocortical carcinoma
     Route: 065
  2. PREDNISONE [Suspect]
     Active Substance: PREDNISONE
     Indication: Hypoglycaemia
     Dosage: HIGH DOSE
     Route: 065
  3. PASIREOTIDE [Concomitant]
     Active Substance: PASIREOTIDE
     Indication: Hypoglycaemia
     Route: 065
  4. OCTREOTIDE [Suspect]
     Active Substance: OCTREOTIDE
     Indication: Hypoglycaemia
     Route: 065
  5. CABOZANTINIB [Suspect]
     Active Substance: CABOZANTINIB
     Indication: Adrenocortical carcinoma
     Route: 065
  6. DIAZOXIDE [Concomitant]
     Active Substance: DIAZOXIDE
     Indication: Hypoglycaemia
     Route: 065
  7. IVOSIDENIB [Concomitant]
     Active Substance: IVOSIDENIB
     Indication: Adrenocortical carcinoma
     Route: 065
  8. GLUCAGON [Suspect]
     Active Substance: GLUCAGON
     Indication: Hypoglycaemia
     Dosage: DRIP
     Route: 042
  9. MITOTANE [Suspect]
     Active Substance: MITOTANE
     Indication: Adrenocortical carcinoma
     Route: 065
  10. DOXORUBICIN [Suspect]
     Active Substance: DOXORUBICIN
     Indication: Adrenocortical carcinoma
     Route: 065
  11. OLAPARIB [Concomitant]
     Active Substance: OLAPARIB
     Indication: Adrenocortical carcinoma
     Route: 065
  12. DEXTROSE [Suspect]
     Active Substance: DEXTROSE MONOHYDRATE
     Indication: Hypoglycaemia
     Dosage: GLUCOSE 50
     Route: 042
  13. ETOPOSIDE [Suspect]
     Active Substance: ETOPOSIDE
     Indication: Adrenocortical carcinoma
     Route: 065
  14. OSILODROSTAT [Concomitant]
     Active Substance: OSILODROSTAT
     Indication: Cushing^s syndrome
     Route: 065
  15. PEMBROLIZUMAB [Concomitant]
     Active Substance: PEMBROLIZUMAB
     Indication: Adrenocortical carcinoma
     Route: 065

REACTIONS (4)
  - Drug ineffective [Unknown]
  - Cardiomyopathy [Unknown]
  - Hypervolaemia [Unknown]
  - Pancytopenia [Unknown]
